FAERS Safety Report 6297763-X (Version None)
Quarter: 2009Q3

REPORT INFORMATION
  Report Type: 
  Country: None (occurrence: None)
  Receive Date: 20090804
  Receipt Date: 20090804
  Transmission Date: 20100115
  Serious: Yes (Life-Threatening)
  Sender: FDA-Public Use
  Company Number: None

PATIENT
  Sex: Male
  Weight: 23.6 kg

DRUGS (9)
  1. FOCALIN XR [Suspect]
     Indication: ASPERGER'S DISORDER
     Dosage: FOCALIN XR 10 MG QAM AND Q 1:30 PM ORAL TAKING ALL MEDS SINCE MARCH 2008
     Route: 048
     Dates: start: 20080301
  2. FOCALIN XR [Suspect]
     Indication: ATTENTION DEFICIT/HYPERACTIVITY DISORDER
     Dosage: FOCALIN XR 10 MG QAM AND Q 1:30 PM ORAL TAKING ALL MEDS SINCE MARCH 2008
     Route: 048
     Dates: start: 20080301
  3. FOCALIN XR [Suspect]
     Indication: PSYCHOMOTOR HYPERACTIVITY
     Dosage: FOCALIN XR 10 MG QAM AND Q 1:30 PM ORAL TAKING ALL MEDS SINCE MARCH 2008
     Route: 048
     Dates: start: 20080301
  4. CLONIDINE [Suspect]
     Indication: ASPERGER'S DISORDER
     Dosage: CLONIDINE O.1MG 5PM ORAL
     Route: 048
  5. CLONIDINE [Suspect]
     Indication: ATTENTION DEFICIT/HYPERACTIVITY DISORDER
     Dosage: CLONIDINE O.1MG 5PM ORAL
     Route: 048
  6. CLONIDINE [Suspect]
     Indication: PSYCHOMOTOR HYPERACTIVITY
     Dosage: CLONIDINE O.1MG 5PM ORAL
     Route: 048
  7. STRATTERA [Suspect]
     Indication: ASPERGER'S DISORDER
     Dosage: STRATTERA 25MG HS QAM ORAL
     Route: 048
  8. STRATTERA [Suspect]
     Indication: ATTENTION DEFICIT/HYPERACTIVITY DISORDER
     Dosage: STRATTERA 25MG HS QAM ORAL
     Route: 048
  9. STRATTERA [Suspect]
     Indication: PSYCHOMOTOR HYPERACTIVITY
     Dosage: STRATTERA 25MG HS QAM ORAL
     Route: 048

REACTIONS (8)
  - BODY TEMPERATURE DECREASED [None]
  - DIZZINESS [None]
  - FOAMING AT MOUTH [None]
  - IMPULSIVE BEHAVIOUR [None]
  - INSOMNIA [None]
  - LOSS OF CONSCIOUSNESS [None]
  - SKIN DISCOLOURATION [None]
  - UNRESPONSIVE TO STIMULI [None]
